FAERS Safety Report 9365885 (Version 1)
Quarter: 2013Q2

REPORT INFORMATION
  Report Type: Spontaneous
  Country: US (occurrence: US)
  Receive Date: 20130625
  Receipt Date: 20130625
  Transmission Date: 20140414
  Serious: Yes (Hospitalization, Other)
  Sender: FDA-Public Use
  Company Number: US-B.I. PHARMACEUTICALS,INC./RIDGEFIELD-2013-BI-18367GD

PATIENT
  Age: 80 Year
  Sex: Female
  Weight: 83 kg

DRUGS (1)
  1. PRADAXA [Suspect]
     Dosage: 300 MG

REACTIONS (9)
  - Subarachnoid haemorrhage [Unknown]
  - Subdural haemorrhage [Unknown]
  - Renal failure acute [Unknown]
  - Anuria [Unknown]
  - Hyperkalaemia [Unknown]
  - Arthralgia [Unknown]
  - Lethargy [Unknown]
  - International normalised ratio increased [Not Recovered/Not Resolved]
  - Fall [Unknown]
